FAERS Safety Report 14868647 (Version 1)
Quarter: 2018Q2

REPORT INFORMATION
  Report Type: Spontaneous
  Country: US (occurrence: US)
  Receive Date: 20180509
  Receipt Date: 20180509
  Transmission Date: 20180711
  Serious: No
  Sender: FDA-Public Use
  Company Number: US-ASTRAZENECA-2018SE50646

PATIENT

DRUGS (1)
  1. PRILOSEC OTC [Suspect]
     Active Substance: OMEPRAZOLE MAGNESIUM
     Indication: DYSPEPSIA
     Dosage: HAS TAKEN 11 OF 14 TABLETS, FREQUENCY UNKNOWN
     Route: 048

REACTIONS (2)
  - Drug effective for unapproved indication [Unknown]
  - Blood pressure increased [Unknown]
